FAERS Safety Report 15479258 (Version 1)
Quarter: 2018Q4

REPORT INFORMATION
  Report Type: Spontaneous
  Country: US (occurrence: US)
  Receive Date: 20181003
  Receipt Date: 20181003
  Transmission Date: 20190205
  Serious: Yes (Disabling)
  Sender: FDA-Public Use
  Company Number: None

PATIENT
  Age: 60 Year
  Sex: Male

DRUGS (11)
  1. HYDRALAZINE [Concomitant]
     Active Substance: HYDRALAZINE HYDROCHLORIDE
  2. PRAVASTATIN. [Concomitant]
     Active Substance: PRAVASTATIN
  3. RISPERDAL [Suspect]
     Active Substance: RISPERIDONE
     Indication: INSOMNIA
     Route: 048
     Dates: start: 2013, end: 2015
  4. CARVEDILOL. [Concomitant]
     Active Substance: CARVEDILOL
  5. XARELTO [Concomitant]
     Active Substance: RIVAROXABAN
  6. LISINOPRIL. [Concomitant]
     Active Substance: LISINOPRIL
  7. DIGOXIN. [Concomitant]
     Active Substance: DIGOXIN
  8. LORAZEPAM. [Concomitant]
     Active Substance: LORAZEPAM
  9. CETIRIZINE [Concomitant]
     Active Substance: CETIRIZINE HYDROCHLORIDE
  10. VENLAFAXINE [Concomitant]
     Active Substance: VENLAFAXINE HYDROCHLORIDE
  11. SPIRONOLACTONE. [Concomitant]
     Active Substance: SPIRONOLACTONE

REACTIONS (2)
  - Weight increased [None]
  - Gynaecomastia [None]

NARRATIVE: CASE EVENT DATE: 2013
